FAERS Safety Report 18377050 (Version 1)
Quarter: 2020Q4

REPORT INFORMATION
  Report Type: Spontaneous
  Country: NL (occurrence: NL)
  Receive Date: 20201013
  Receipt Date: 20201013
  Transmission Date: 20210114
  Serious: Yes (Other)
  Sender: FDA-Public Use
  Company Number: NL-TEVA-2020-NL-1836919

PATIENT
  Sex: Female
  Weight: 77 kg

DRUGS (6)
  1. LISINOPRIL TABLET 10MG / BRAND NAME NOT SPECIFIED [Concomitant]
     Active Substance: LISINOPRIL
     Dosage: UNIT DOSE : 10 MG , THERAPY START DATE AND END DATE : ASKU
  2. IPRATROPIUM INHALATIECAPSULE 40UG / BRAND NAME NOT SPECIFIED [Concomitant]
     Dosage: UNIT DOSE : 40 MICROGRAM, THERAPY START DATE AND END DATE : ASKU
  3. RIVAROXABAN TABLET 20MG / BRAND NAME NOT SPECIFIED [Concomitant]
     Dosage: UNIT DOSE : 20 MG, THERAPY START DATE AND END DATE : ASKU
  4. FLECAINIDE CAPSULE MGA 100MG / BRAND NAME NOT SPECIFIED [Concomitant]
     Dosage: UNIT DOSE : 100 MG , THERAPY START DATE AND END DATE : ASKU
  5. BECLOMETASON [Suspect]
     Active Substance: BECLOMETHASONE DIPROPIONATE
     Indication: ASTHMA
     Dosage: BECLOMETASON AEROSOL 250UG/DO / BRAND NAME NOT SPECIFIED, 2DD 1, UNIT DOSE  : 250 MICROGRAM
     Dates: start: 20180419, end: 20200401
  6. BECLOMETASON [Suspect]
     Active Substance: BECLOMETHASONE DIPROPIONATE
     Indication: RHINITIS
     Dosage: BECLOMETASON NEUSSPRAY 50UG/DO / BRAND NAME NOT SPECIFIED, 2DD 1
     Dates: start: 20190419, end: 20200401

REACTIONS (1)
  - Atrial fibrillation [Recovered/Resolved]
